FAERS Safety Report 12641165 (Version 1)
Quarter: 2016Q3

REPORT INFORMATION
  Report Type: Report from Study
  Country: PE (occurrence: PE)
  Receive Date: 20160810
  Receipt Date: 20160810
  Transmission Date: 20161109
  Serious: Yes (Other)
  Sender: FDA-Public Use
  Company Number: PE-009507513-1608PER003981

PATIENT
  Age: 17 Year
  Sex: Female

DRUGS (2)
  1. NASONEX [Suspect]
     Active Substance: MOMETASONE FUROATE
     Indication: RHINITIS
     Dosage: I PUFF IN EACH NOSTRIL, 2 TIMES PER DAY
     Route: 045
     Dates: start: 20160527, end: 20160719
  2. NASONEX [Suspect]
     Active Substance: MOMETASONE FUROATE
     Dosage: 1 PUFF IN EACH NOSTRIL, 1 TIME PER DAY (NIGHT)
     Route: 045
     Dates: start: 20160719, end: 20160722

REACTIONS (2)
  - Surgery [Unknown]
  - Inappropriate schedule of drug administration [Unknown]

NARRATIVE: CASE EVENT DATE: 20160527
